FAERS Safety Report 25935187 (Version 1)
Quarter: 2025Q4

REPORT INFORMATION
  Report Type: Spontaneous
  Country: US (occurrence: None)
  Receive Date: 20251016
  Receipt Date: 20251016
  Transmission Date: 20260117
  Serious: Yes (Hospitalization)
  Sender: FDA-CTU
  Company Number: None

PATIENT
  Age: 27 Year
  Sex: Male
  Weight: 105.3 kg

DRUGS (1)
  1. TORADOL [Suspect]
     Active Substance: KETOROLAC TROMETHAMINE

REACTIONS (5)
  - Infusion related reaction [None]
  - Fatigue [None]
  - Pain [None]
  - Drug monitoring procedure not performed [None]
  - Wrong technique in product usage process [None]

NARRATIVE: CASE EVENT DATE: 20251006
